FAERS Safety Report 5270669-0 (Version None)
Quarter: 2007Q1

REPORT INFORMATION
  Report Type: 
  Country: None (occurrence: None)
  Receive Date: 20070321
  Receipt Date: 20070308
  Transmission Date: 20070707
  Serious: Yes (Hospitalization)
  Sender: FDA-Public Use
  Company Number: PHBS2006JP17052

PATIENT
  Age: 58 Year
  Sex: Female
  Weight: 60 kg

DRUGS (15)
  1. METOPIRONE [Suspect]
     Indication: CUSHING'S SYNDROME
     Dosage: 750 MG/D
     Route: 048
     Dates: start: 20061014
  2. ALDACTONE [Concomitant]
     Route: 048
  3. SIGMART [Concomitant]
     Route: 048
  4. DEPAKENE [Concomitant]
     Route: 048
  5. ALOSENN [Concomitant]
     Route: 048
  6. MICARDIS [Concomitant]
     Route: 048
  7. NORVASC [Concomitant]
     Route: 048
  8. ALLOPURINOL [Concomitant]
     Route: 048
  9. SLOW-K [Concomitant]
     Route: 048
  10. EVISTA [Concomitant]
     Route: 048
     Dates: start: 20061019
  11. OMEPRAL [Concomitant]
     Route: 048
     Dates: start: 20061019
  12. CORTRIL [Concomitant]
     Route: 048
     Dates: start: 20061024
  13. NAPA [Concomitant]
     Route: 048
  14. LEVOFLOXACIN [Concomitant]
     Dosage: 600 MG, QD
     Route: 048
     Dates: start: 20061020, end: 20061028
  15. MEROPEN [Concomitant]
     Dosage: 0.5 G, TID
     Route: 042
     Dates: start: 20061028

REACTIONS (10)
  - ALANINE AMINOTRANSFERASE INCREASED [None]
  - ASPARTATE AMINOTRANSFERASE INCREASED [None]
  - BLOOD ALKALINE PHOSPHATASE INCREASED [None]
  - C-REACTIVE PROTEIN INCREASED [None]
  - CARCINOID TUMOUR PULMONARY [None]
  - GAMMA-GLUTAMYLTRANSFERASE INCREASED [None]
  - HEPATIC FUNCTION ABNORMAL [None]
  - PNEUMONIA [None]
  - PYREXIA [None]
  - WHITE BLOOD CELL COUNT INCREASED [None]
